FAERS Safety Report 6793381-5 (Version None)
Quarter: 2010Q2

REPORT INFORMATION
  Report Type: 
  Country: None (occurrence: None)
  Receive Date: 20100624
  Receipt Date: 20100118
  Transmission Date: 20101027
  Serious: Yes (Death)
  Sender: FDA-Public Use
  Company Number: US-MYLANLABS-2010S1000970

PATIENT
  Age: 80 Year
  Sex: Male

DRUGS (2)
  1. CLOZAPINE [Suspect]
     Route: 048
     Dates: start: 20090601
  2. SINEMET [Concomitant]
     Route: 048

REACTIONS (1)
  - PARKINSON'S DISEASE [None]
